FAERS Safety Report 16123206 (Version 1)
Quarter: 2019Q1

REPORT INFORMATION
  Report Type: Spontaneous
  Country: JP (occurrence: JP)
  Receive Date: 20190327
  Receipt Date: 20190327
  Transmission Date: 20190418
  Serious: Yes (Other)
  Sender: FDA-Public Use
  Company Number: JP-SAKK-2019SA077243AA

PATIENT
  Age: 66 Year
  Sex: Female

DRUGS (7)
  1. CICLOSPORIN [Suspect]
     Active Substance: CYCLOSPORINE
     Indication: APLASTIC ANAEMIA
     Dosage: UNK
     Route: 065
     Dates: start: 201404, end: 201612
  2. CLOPIDOGREL [CLOPIDOGREL BISULFATE] [Concomitant]
     Active Substance: CLOPIDOGREL BISULFATE
     Indication: CEREBELLAR INFARCTION
     Dosage: UNK
     Route: 065
     Dates: start: 2016
  3. TACROLIMUS MONOHYDRATE [Suspect]
     Active Substance: TACROLIMUS
     Indication: PROPHYLAXIS
     Route: 065
  4. THYMOGLOBULINE [Suspect]
     Active Substance: LAPINE T-LYMPHOCYTE IMMUNE GLOBULIN
     Indication: APLASTIC ANAEMIA
     Dosage: UNK
     Route: 041
     Dates: start: 201404, end: 201612
  5. FLUDARA [Suspect]
     Active Substance: FLUDARABINE PHOSPHATE
     Indication: BONE MARROW CONDITIONING REGIMEN
     Route: 041
  6. PREDNISOLONE. [Suspect]
     Active Substance: PREDNISOLONE
     Indication: CHRONIC GRAFT VERSUS HOST DISEASE
     Route: 065
  7. MYCOPHENOLATE MOFETIL. [Concomitant]
     Active Substance: MYCOPHENOLATE MOFETIL
     Indication: PROPHYLAXIS
     Route: 065

REACTIONS (12)
  - Progressive multifocal leukoencephalopathy [Recovering/Resolving]
  - Movement disorder [Recovering/Resolving]
  - Pneumonia aspiration [Recovering/Resolving]
  - Dizziness [Recovering/Resolving]
  - Abulia [Recovering/Resolving]
  - Clinomania [Recovering/Resolving]
  - Dysphagia [Recovering/Resolving]
  - Poverty of speech [Recovering/Resolving]
  - CD4 lymphocytes decreased [Unknown]
  - Fall [Recovering/Resolving]
  - General physical health deterioration [Recovering/Resolving]
  - Hypophagia [Recovering/Resolving]

NARRATIVE: CASE EVENT DATE: 201509
